FAERS Safety Report 18320228 (Version 1)
Quarter: 2020Q3

REPORT INFORMATION
  Report Type: Spontaneous
  Country: CN (occurrence: CN)
  Receive Date: 20200928
  Receipt Date: 20200928
  Transmission Date: 20201103
  Serious: Yes (Hospitalization)
  Sender: FDA-Public Use
  Company Number: CN-PFIZER INC-2020373104

PATIENT
  Age: 20 Year
  Sex: Female
  Weight: 44.5 kg

DRUGS (2)
  1. METHOTREXATE. [Suspect]
     Active Substance: METHOTREXATE
     Indication: ECTOPIC PREGNANCY
     Dosage: 0.02 G, 1X/DAY
     Route: 030
     Dates: start: 20200821, end: 20200821
  2. METHOTREXATE. [Suspect]
     Active Substance: METHOTREXATE
     Dosage: 0.05 G, 1X/DAY
     Route: 030
     Dates: start: 20200822, end: 20200825

REACTIONS (11)
  - Erythema [Unknown]
  - White blood cell count decreased [Unknown]
  - Product use in unapproved indication [Unknown]
  - Off label use [Unknown]
  - Rash [Recovered/Resolved]
  - Tongue ulceration [Unknown]
  - Discomfort [Unknown]
  - Rash erythematous [Unknown]
  - Pruritus [Unknown]
  - Mouth ulceration [Recovered/Resolved]
  - Oropharyngeal discomfort [Recovered/Resolved]

NARRATIVE: CASE EVENT DATE: 20200821
